FAERS Safety Report 18957822 (Version 1)
Quarter: 2021Q1

REPORT INFORMATION
  Report Type: Spontaneous
  Country: US (occurrence: US)
  Receive Date: 20210302
  Receipt Date: 20210302
  Transmission Date: 20210420
  Serious: Yes (Hospitalization)
  Sender: FDA-Public Use
  Company Number: None

PATIENT
  Age: 75 Year
  Sex: Female

DRUGS (1)
  1. SPRYCEL [Suspect]
     Active Substance: DASATINIB
     Indication: HYPERKALAEMIA
     Route: 048
     Dates: start: 20201203

REACTIONS (2)
  - Intentional dose omission [None]
  - Hospitalisation [None]

NARRATIVE: CASE EVENT DATE: 20210301
